FAERS Safety Report 9107462 (Version 1)
Quarter: 2013Q1

REPORT INFORMATION
  Report Type: Spontaneous
  Country: US (occurrence: US)
  Receive Date: 20130221
  Receipt Date: 20130221
  Transmission Date: 20140127
  Serious: Yes (Hospitalization, Other)
  Sender: FDA-Public Use
  Company Number: US-AMGEN-USASP2013011629

PATIENT
  Age: 77 Year
  Sex: Male

DRUGS (2)
  1. ENBREL [Suspect]
     Indication: RHEUMATOID ARTHRITIS
     Dosage: 50 MG, QWK
     Dates: start: 19970801
  2. FOSAMAX [Concomitant]
     Dosage: UNK

REACTIONS (14)
  - Back pain [Recovered/Resolved]
  - Intervertebral disc operation [Recovered/Resolved]
  - Hypotension [Recovered/Resolved]
  - Fracture [Recovered/Resolved]
  - Pain in extremity [Recovered/Resolved]
  - Spinal fusion surgery [Recovered/Resolved]
  - Musculoskeletal discomfort [Recovered/Resolved]
  - Tooth extraction [Recovered/Resolved]
  - Gingival swelling [Recovered/Resolved]
  - Impaired healing [Recovered/Resolved]
  - Mass excision [Recovered/Resolved]
  - Arthralgia [Not Recovered/Not Resolved]
  - Localised infection [Recovered/Resolved]
  - Staphylococcal infection [Recovered/Resolved]
